FAERS Safety Report 9313865 (Version 1)
Quarter: 2013Q2

REPORT INFORMATION
  Report Type: Spontaneous
  Country: US (occurrence: US)
  Receive Date: 20130529
  Receipt Date: 20130529
  Transmission Date: 20140414
  Serious: No
  Sender: FDA-Public Use
  Company Number: US-BIOGENIDEC-2013BI047254

PATIENT
  Sex: Female

DRUGS (2)
  1. TYSABRI [Suspect]
     Indication: MULTIPLE SCLEROSIS
     Route: 042
     Dates: start: 20061101, end: 20080326
  2. TYSABRI [Suspect]
     Indication: MULTIPLE SCLEROSIS
     Route: 042
     Dates: end: 20120613

REACTIONS (11)
  - Migraine [Unknown]
  - Abasia [Unknown]
  - Muscle spasms [Unknown]
  - Depressed mood [Not Recovered/Not Resolved]
  - Insomnia [Not Recovered/Not Resolved]
  - Mobility decreased [Not Recovered/Not Resolved]
  - Tremor [Not Recovered/Not Resolved]
  - Asthenia [Not Recovered/Not Resolved]
  - Herpes zoster [Unknown]
  - Gastroenteritis norovirus [Not Recovered/Not Resolved]
  - Pyrexia [Recovered/Resolved]
